FAERS Safety Report 10007342 (Version 1)
Quarter: 2014Q1

REPORT INFORMATION
  Report Type: Spontaneous
  Country: US (occurrence: US)
  Receive Date: 20140313
  Receipt Date: 20140313
  Transmission Date: 20141002
  Serious: Yes (Other)
  Sender: FDA-Public Use
  Company Number: US-GE HEALTHCARE MEDICAL DIAGNOSTICS-OSCN-PR-0903S-0153

PATIENT
  Age: 73 Year
  Sex: Female

DRUGS (6)
  1. OMNISCAN [Suspect]
     Indication: PRODUCT USED FOR UNKNOWN INDICATION
     Route: 042
     Dates: start: 20050721, end: 20050721
  2. OMNISCAN [Suspect]
     Indication: HIGH FREQUENCY ABLATION
     Route: 042
     Dates: start: 20071114, end: 20071114
  3. GADOLINIUM (UNSPECIFIED) [Suspect]
     Indication: HIGH FREQUENCY ABLATION
     Route: 042
     Dates: start: 20051130, end: 20051130
  4. GADOLINIUM (UNSPECIFIED) [Suspect]
     Indication: RENAL CELL CARCINOMA
     Route: 042
     Dates: start: 20060510, end: 20060510
  5. GADOLINIUM (UNSPECIFIED) [Suspect]
     Route: 042
     Dates: start: 20061027, end: 20061027
  6. GADOLINIUM (UNSPECIFIED) [Suspect]
     Route: 042
     Dates: start: 20070416, end: 20070416

REACTIONS (1)
  - Nephrogenic systemic fibrosis [Not Recovered/Not Resolved]
